FAERS Safety Report 16808552 (Version 4)
Quarter: 2021Q1

REPORT INFORMATION
  Report Type: Spontaneous
  Country: US (occurrence: US)
  Receive Date: 20190916
  Receipt Date: 20210127
  Transmission Date: 20210419
  Serious: Yes (Other)
  Sender: FDA-Public Use
  Company Number: US-GILEAD-2019-0428008

PATIENT
  Age: 49 Year
  Sex: Female

DRUGS (52)
  1. ATRIPLA [Suspect]
     Active Substance: EFAVIRENZ\EMTRICITABINE\TENOFOVIR DISOPROXIL FUMARATE
     Dosage: UNK
     Route: 048
     Dates: start: 2007, end: 2008
  2. MELOXICAM. [Concomitant]
     Active Substance: MELOXICAM
  3. SYMBICORT [Concomitant]
     Active Substance: BUDESONIDE\FORMOTEROL FUMARATE DIHYDRATE
  4. ADVAIR HFA [Concomitant]
     Active Substance: FLUTICASONE PROPIONATE\SALMETEROL XINAFOATE
  5. HYDROCODONE [Concomitant]
     Active Substance: HYDROCODONE
  6. CEFDINIR. [Concomitant]
     Active Substance: CEFDINIR
  7. PREDNISONE. [Concomitant]
     Active Substance: PREDNISONE
  8. MEPRON [Concomitant]
     Active Substance: ATOVAQUONE
  9. LEUCOVORIN CALCIUM. [Concomitant]
     Active Substance: LEUCOVORIN CALCIUM
  10. TRUVADA [Suspect]
     Active Substance: EMTRICITABINE\TENOFOVIR DISOPROXIL FUMARATE
     Dosage: UNK
     Route: 065
     Dates: start: 2008, end: 2016
  11. ATRIPLA [Suspect]
     Active Substance: EFAVIRENZ\EMTRICITABINE\TENOFOVIR DISOPROXIL FUMARATE
     Indication: HIV INFECTION
     Dosage: UNK
     Route: 048
     Dates: start: 200707, end: 200810
  12. ERGOCALCIFEROL. [Concomitant]
     Active Substance: ERGOCALCIFEROL
  13. ISENTRESS [Concomitant]
     Active Substance: RALTEGRAVIR POTASSIUM
  14. LIDOCAINE. [Concomitant]
     Active Substance: LIDOCAINE
  15. DULERA [Concomitant]
     Active Substance: FORMOTEROL FUMARATE DIHYDRATE\MOMETASONE FUROATE
  16. XYZAL [Concomitant]
     Active Substance: LEVOCETIRIZINE DIHYDROCHLORIDE
  17. DESCOVY [Concomitant]
     Active Substance: EMTRICITABINE\TENOFOVIR ALAFENAMIDE FUMARATE
  18. ACETAMINOPHEN. [Concomitant]
     Active Substance: ACETAMINOPHEN
  19. NYSTATIN. [Concomitant]
     Active Substance: NYSTATIN
  20. TRAMADOL. [Concomitant]
     Active Substance: TRAMADOL
  21. NASONEX [Concomitant]
     Active Substance: MOMETASONE FUROATE
  22. FEXOFENADINE [Concomitant]
     Active Substance: FEXOFENADINE HYDROCHLORIDE
  23. ESCITALOPRAM [Concomitant]
     Active Substance: ESCITALOPRAM OXALATE
  24. RITONAVIR. [Concomitant]
     Active Substance: RITONAVIR
  25. AVELOX [Concomitant]
     Active Substance: MOXIFLOXACIN HYDROCHLORIDE
  26. TUSSIONEX [CHLORPHENAMINE;HYDROCODONE BITARTRATE] [Concomitant]
  27. KETOCONAZOLE. [Concomitant]
     Active Substance: KETOCONAZOLE
  28. TRUVADA [Suspect]
     Active Substance: EMTRICITABINE\TENOFOVIR DISOPROXIL FUMARATE
     Indication: HIV INFECTION
     Dosage: UNK
     Route: 048
     Dates: start: 201012, end: 201609
  29. DRONABINOL. [Concomitant]
     Active Substance: DRONABINOL
  30. PREZISTA [Concomitant]
     Active Substance: DARUNAVIR ETHANOLATE
  31. SPIRIVA [Concomitant]
     Active Substance: TIOTROPIUM BROMIDE MONOHYDRATE
  32. CEPHALEXIN [CEFALEXIN] [Concomitant]
     Active Substance: CEPHALEXIN
  33. DEXILANT [Concomitant]
     Active Substance: DEXLANSOPRAZOLE
  34. MONTELUKAST [Concomitant]
     Active Substance: MONTELUKAST SODIUM
  35. DAPSONE. [Concomitant]
     Active Substance: DAPSONE
  36. ALPRAZOLAM. [Concomitant]
     Active Substance: ALPRAZOLAM
  37. AZITHROMYCIN ANHYDROUS. [Concomitant]
     Active Substance: AZITHROMYCIN ANHYDROUS
  38. METRONIDAZOLE. [Concomitant]
     Active Substance: METRONIDAZOLE
  39. VERAMYST [Concomitant]
     Active Substance: FLUTICASONE FUROATE
  40. COMBIVIR [Concomitant]
     Active Substance: LAMIVUDINE\ZIDOVUDINE
  41. CIPROFLOXACIN. [Concomitant]
     Active Substance: CIPROFLOXACIN
  42. TRUVADA [Suspect]
     Active Substance: EMTRICITABINE\TENOFOVIR DISOPROXIL FUMARATE
     Dosage: UNK
     Route: 065
     Dates: start: 200811, end: 201012
  43. ASPIRIN 81 [Concomitant]
     Active Substance: ASPIRIN
  44. BISACODYL. [Concomitant]
     Active Substance: BISACODYL
  45. DOCUSATE SODIUM. [Concomitant]
     Active Substance: DOCUSATE SODIUM
  46. EPINEPHRINE. [Concomitant]
     Active Substance: EPINEPHRINE
  47. FLUOCINONIDE. [Concomitant]
     Active Substance: FLUOCINONIDE
  48. NORVIR [Concomitant]
     Active Substance: RITONAVIR
  49. PROTONIX [Concomitant]
     Active Substance: PANTOPRAZOLE SODIUM
  50. VENTOLIN [Concomitant]
     Active Substance: ALBUTEROL SULFATE
  51. DARAPRIM [Concomitant]
     Active Substance: PYRIMETHAMINE
  52. BENTYL [Concomitant]
     Active Substance: DICYCLOMINE HYDROCHLORIDE

REACTIONS (14)
  - Bone loss [Unknown]
  - Osteoarthritis [Not Recovered/Not Resolved]
  - Osteoarthritis [Not Recovered/Not Resolved]
  - Bone density decreased [Unknown]
  - Economic problem [Unknown]
  - Arthritis [Not Recovered/Not Resolved]
  - Osteonecrosis [Unknown]
  - Pain [Unknown]
  - Osteoporosis [Unknown]
  - Arthritis [Not Recovered/Not Resolved]
  - Emotional distress [Unknown]
  - Deafness [Not Recovered/Not Resolved]
  - Anhedonia [Unknown]
  - Anxiety [Unknown]

NARRATIVE: CASE EVENT DATE: 201801
